FAERS Safety Report 20722038 (Version 1)
Quarter: 2022Q2

REPORT INFORMATION
  Report Type: Other
  Country: None (occurrence: US)
  Receive Date: 20220418
  Receipt Date: 20220418
  Transmission Date: 20220720
  Serious: Yes (Hospitalization)
  Sender: FDA-Public Use
  Company Number: US-B.Braun Medical Inc.-2127881

PATIENT
  Age: 17 Year
  Sex: Male
  Weight: 76.5 kg

DRUGS (12)
  1. BUPIVACAINE HYDROCHLORIDE WITH DEXTROSE [Suspect]
     Active Substance: BUPIVACAINE HYDROCHLORIDE
     Indication: Nerve block
  2. BUPIVACAINE [Suspect]
     Active Substance: BUPIVACAINE
     Route: 051
  3. PROPOFOL [Concomitant]
     Active Substance: PROPOFOL
  4. FENTANYL [Concomitant]
     Active Substance: FENTANYL
  5. LIDOCAINE [Concomitant]
     Active Substance: LIDOCAINE
  6. ROCURONIUM [Concomitant]
     Active Substance: ROCURONIUM BROMIDE
  7. SEVOFLURANE [Concomitant]
     Active Substance: SEVOFLURANE
  8. LIDOCAINE HYDROCHLORIDE AND EPINEPHRINE BITARTRATE [Concomitant]
     Active Substance: EPINEPHRINE BITARTRATE\LIDOCAINE HYDROCHLORIDE
  9. OXYMETAZOLINE [Concomitant]
     Active Substance: OXYMETAZOLINE
  10. SUGAMMADEX [Concomitant]
     Active Substance: SUGAMMADEX
  11. ONDANSETRON [Concomitant]
     Active Substance: ONDANSETRON
  12. LACTATED RINGERS SOLUTION [Concomitant]
     Active Substance: CALCIUM CHLORIDE\POTASSIUM CHLORIDE\SODIUM CHLORIDE\SODIUM LACTATE

REACTIONS (3)
  - Hypertension [Recovered/Resolved]
  - Off label use [Recovered/Resolved]
  - Product administered to patient of inappropriate age [Recovered/Resolved]
